FAERS Safety Report 12506947 (Version 1)
Quarter: 2016Q2

REPORT INFORMATION
  Report Type: Spontaneous
  Country: CH (occurrence: CH)
  Receive Date: 20160629
  Receipt Date: 20160629
  Transmission Date: 20160815
  Serious: Yes (Hospitalization)
  Sender: FDA-Public Use
  Company Number: CH-ASTRAZENECA-2016SE70299

PATIENT
  Sex: Male
  Weight: 2.7 kg

DRUGS (8)
  1. ZOLPIDEM [Suspect]
     Active Substance: ZOLPIDEM\ZOLPIDEM TARTRATE
     Dosage: 10 MG, DAILY, GENERIC
     Route: 064
  2. MOTILIUM [Suspect]
     Active Substance: DOMPERIDONE
     Indication: MIGRAINE
     Route: 064
  3. NEXIUM [Suspect]
     Active Substance: ESOMEPRAZOLE MAGNESIUM
     Route: 064
  4. IMIGRAN [Suspect]
     Active Substance: SUMATRIPTAN SUCCINATE
     Indication: MIGRAINE
     Route: 064
  5. TEMESTA [Suspect]
     Active Substance: LORAZEPAM
     Route: 064
  6. ZOLOFT [Suspect]
     Active Substance: SERTRALINE HYDROCHLORIDE
     Indication: DEPRESSION
     Route: 064
  7. XANAX [Suspect]
     Active Substance: ALPRAZOLAM
     Route: 064
  8. ZYPREXA [Suspect]
     Active Substance: OLANZAPINE
     Route: 064

REACTIONS (5)
  - Foetal growth restriction [Unknown]
  - Hypoglycaemia [Unknown]
  - Polycythaemia [Unknown]
  - Congenital skin dimples [Unknown]
  - Thrombocytopenia [Unknown]
